FAERS Safety Report 22519276 (Version 1)
Quarter: 2023Q2

REPORT INFORMATION
  Report Type: Spontaneous
  Country: US (occurrence: US)
  Receive Date: 20230605
  Receipt Date: 20230605
  Transmission Date: 20230722
  Serious: Yes (Other)
  Sender: FDA-Public Use
  Company Number: US-GLAXOSMITHKLINE-US2021AMR241110

PATIENT

DRUGS (4)
  1. ZEJULA [Suspect]
     Active Substance: NIRAPARIB
     Indication: Ovarian cancer
     Dosage: 200 MG, QD, NIGHTLY
     Route: 048
     Dates: start: 20211108
  2. ZEJULA [Suspect]
     Active Substance: NIRAPARIB
     Dosage: 200 MG, QD
     Route: 048
     Dates: start: 20211111, end: 202204
  3. ZEJULA [Suspect]
     Active Substance: NIRAPARIB
     Dosage: 100 MG, QD
     Route: 048
     Dates: start: 2022
  4. ZEJULA [Suspect]
     Active Substance: NIRAPARIB
     Dosage: 100 MG, QD(QHS EVERY NIGHT AT BEDTIME)

REACTIONS (21)
  - Malignant neoplasm progression [Unknown]
  - Middle insomnia [Not Recovered/Not Resolved]
  - Sleep disorder [Unknown]
  - Dysuria [Recovering/Resolving]
  - Nausea [Not Recovered/Not Resolved]
  - Bone pain [Not Recovered/Not Resolved]
  - Fatigue [Unknown]
  - Insomnia [Recovering/Resolving]
  - Pain [Recovering/Resolving]
  - Constipation [Not Recovered/Not Resolved]
  - Hypertension [Recovered/Resolved]
  - Urine output decreased [Unknown]
  - Blood pressure increased [Recovered/Resolved]
  - Myalgia [Not Recovered/Not Resolved]
  - Amnesia [Unknown]
  - Memory impairment [Unknown]
  - Arthralgia [Not Recovered/Not Resolved]
  - Back pain [Not Recovered/Not Resolved]
  - Intervertebral disc degeneration [Not Recovered/Not Resolved]
  - Condition aggravated [Not Recovered/Not Resolved]
  - Computerised tomogram abnormal [Unknown]

NARRATIVE: CASE EVENT DATE: 20211101
